FAERS Safety Report 14657791 (Version 1)
Quarter: 2018Q1

REPORT INFORMATION
  Report Type: Spontaneous
  Country: US (occurrence: US)
  Receive Date: 20180320
  Receipt Date: 20180320
  Transmission Date: 20180509
  Serious: Yes (Hospitalization, Other)
  Sender: FDA-Public Use
  Company Number: US-BEH-2018088825

PATIENT
  Age: 55 Year
  Sex: Male

DRUGS (1)
  1. PRIVIGEN [Suspect]
     Active Substance: HUMAN IMMUNOGLOBULIN G
     Indication: MYASTHENIA GRAVIS
     Dosage: 20 G, DAILY FOR 5 DAYS EVERY 3 WEEKS
     Route: 042
     Dates: start: 20180223, end: 20180227

REACTIONS (4)
  - Dialysis [Unknown]
  - Unresponsive to stimuli [Unknown]
  - Myasthenia gravis [Unknown]
  - Pulse absent [Recovered/Resolved]

NARRATIVE: CASE EVENT DATE: 201803
